FAERS Safety Report 16654790 (Version 4)
Quarter: 2021Q4

REPORT INFORMATION
  Report Type: Spontaneous
  Country: CA (occurrence: CA)
  Receive Date: 20190801
  Receipt Date: 20211109
  Transmission Date: 20220303
  Serious: Yes (Hospitalization, Other)
  Sender: FDA-Public Use
  Company Number: CA-AUROBINDO-AUR-APL-2019-043905

PATIENT
  Age: 60 Year
  Sex: Male

DRUGS (20)
  1. LEVETIRACETAM [Suspect]
     Active Substance: LEVETIRACETAM
     Indication: Status epilepticus
     Dosage: 1500 MILLIGRAM, TWO TIMES A DAY
     Route: 042
  2. LEVETIRACETAM [Suspect]
     Active Substance: LEVETIRACETAM
     Indication: Seizure
     Dosage: 1500 MILLIGRAM, TWO TIMES A DAY
     Route: 065
  3. MIDAZOLAM [Suspect]
     Active Substance: MIDAZOLAM
     Indication: Status epilepticus
     Dosage: 30 MILLIGRAM, 1 EVERY 1 HOUR
     Route: 042
  4. MIDAZOLAM [Suspect]
     Active Substance: MIDAZOLAM
     Dosage: 5 MILLIGRAM
     Route: 040
  5. PHENYTOIN [Suspect]
     Active Substance: PHENYTOIN
     Indication: Status epilepticus
     Dosage: UNK
     Route: 042
  6. PHENYTOIN [Suspect]
     Active Substance: PHENYTOIN
     Indication: Seizure
     Dosage: UNK
     Route: 065
  7. PHENYTOIN [Suspect]
     Active Substance: PHENYTOIN
     Indication: Epilepsy
     Dosage: 150 MILLIGRAM, 3 TIMES A DAY
     Route: 065
  8. PHENYTOIN [Suspect]
     Active Substance: PHENYTOIN
     Indication: Cerebral palsy
     Dosage: 450 MILLIGRAM, ONCE A DAY
     Route: 065
  9. PHENYTOIN [Suspect]
     Active Substance: PHENYTOIN
     Dosage: 250 MILLIGRAM, ONCE A DAY
     Route: 065
  10. PROPOFOL [Suspect]
     Active Substance: PROPOFOL
     Indication: Status epilepticus
     Dosage: 50 MICROGRAM/KILOGRAM, 1 EVERY 1 MINUTE
     Route: 065
  11. MIDAZOLAM [Suspect]
     Active Substance: MIDAZOLAM
     Indication: Seizure
     Dosage: 5 MILLIGRAM, AS REQUIRED
     Route: 040
  12. MIDAZOLAM [Suspect]
     Active Substance: MIDAZOLAM
     Dosage: 30 MILLIGRAM, 1 EVERY 1 HOUR (S)
     Route: 041
  13. PROPOFOL [Suspect]
     Active Substance: PROPOFOL
     Indication: Seizure
     Dosage: 50 MILLIGRAM/KILOGRAM, 1 EVERY 1 MINUTE
     Route: 041
  14. PROPOFOL [Suspect]
     Active Substance: PROPOFOL
     Dosage: 30 MILLIGRAM, AS REQUIRED
     Route: 040
  15. CLOBAZAM [Suspect]
     Active Substance: CLOBAZAM
     Indication: Epilepsy
     Dosage: 10 MILLIGRAM, TWO TIMES A DAY
     Route: 065
  16. CLOBAZAM [Suspect]
     Active Substance: CLOBAZAM
     Indication: Cerebral palsy
  17. KETAMINE HYDROCHLORIDE [Suspect]
     Active Substance: KETAMINE HYDROCHLORIDE
     Indication: Seizure
     Dosage: 220 MILLIGRAM, EVERY HOUR
     Route: 041
  18. KETAMINE HYDROCHLORIDE [Suspect]
     Active Substance: KETAMINE HYDROCHLORIDE
     Dosage: 50 MILLIGRAM
     Route: 040
  19. KETAMINE HYDROCHLORIDE [Suspect]
     Active Substance: KETAMINE HYDROCHLORIDE
     Dosage: 40 MILLIGRAM, EVERY HOUR
     Route: 042
  20. LEVOFLOXACIN [Concomitant]
     Active Substance: LEVOFLOXACIN
     Indication: Product used for unknown indication
     Dosage: UNK
     Route: 065

REACTIONS (3)
  - Hypotension [Recovered/Resolved]
  - Drug ineffective [Recovered/Resolved]
  - Seizure [Unknown]
